FAERS Safety Report 5675441-5 (Version None)
Quarter: 2008Q2

REPORT INFORMATION
  Report Type: 
  Country: None (occurrence: None)
  Receive Date: 20080311
  Receipt Date: 20070730
  Transmission Date: 20081010
  Serious: Yes (Hospitalization, Other)
  Sender: FDA-Public Use
  Company Number: PHEH2007US01636

PATIENT
  Age: 11 Year
  Sex: Female
  Weight: 34.9 kg

DRUGS (1)
  1. TRILEPTAL [Suspect]
     Indication: EPILEPSY
     Dosage: TWO 150 MG AND TWO AND A HALF 150 MG, ORAL
     Route: 048
     Dates: start: 20030101, end: 20061001

REACTIONS (4)
  - BLOOD AMYLASE INCREASED [None]
  - DIARRHOEA [None]
  - LIPASE INCREASED [None]
  - PANCREATITIS [None]
